FAERS Safety Report 19577731 (Version 2)
Quarter: 2022Q2

REPORT INFORMATION
  Report Type: Spontaneous
  Country: US (occurrence: US)
  Receive Date: 20210719
  Receipt Date: 20220405
  Transmission Date: 20220721
  Serious: No
  Sender: FDA-Public Use
  Company Number: US-PFIZER INC-2021416782

PATIENT
  Age: 45 Year
  Sex: Female
  Weight: 61.224 kg

DRUGS (14)
  1. IBRANCE [Suspect]
     Active Substance: PALBOCICLIB
     Indication: Breast cancer
     Dosage: 125 MG, CYCLIC (21 DAYS ON, 7 DAYS OFF)
     Route: 048
     Dates: start: 20210402, end: 20210512
  2. IBRANCE [Suspect]
     Active Substance: PALBOCICLIB
     Dosage: 125 MG,UNK
     Dates: start: 20210301
  3. IBRANCE [Suspect]
     Active Substance: PALBOCICLIB
     Dosage: 125 MG,UNK
     Dates: start: 20210402
  4. IBRANCE [Suspect]
     Active Substance: PALBOCICLIB
     Dosage: 125 MG, CYCLIC (21 DAYS ON, 7 DAYS OFF)
     Route: 048
     Dates: start: 20210402
  5. VITAMIN C [Concomitant]
     Active Substance: ASCORBIC ACID
     Dosage: UNK
  6. ZINC [Concomitant]
     Active Substance: ZINC
     Dosage: UNK
  7. ZOLADEX [Concomitant]
     Active Substance: GOSERELIN ACETATE
     Dosage: UNK
  8. VITAMIN B6 [Concomitant]
     Active Substance: PYRIDOXINE HYDROCHLORIDE
     Dosage: UNK
  9. ISONIAZID [Concomitant]
     Active Substance: ISONIAZID
     Dosage: UNK
  10. LETROZOLE [Concomitant]
     Active Substance: LETROZOLE
     Dosage: UNK
  11. KISQALI [Concomitant]
     Active Substance: RIBOCICLIB
     Dosage: UNK
  12. ALBUTEROL SULFATE [Concomitant]
     Active Substance: ALBUTEROL SULFATE
     Dosage: UNK
  13. CALCIUM CARBONATE [Concomitant]
     Active Substance: CALCIUM CARBONATE
     Dosage: UNK
  14. TYLENOL [Concomitant]
     Active Substance: ACETAMINOPHEN
     Dosage: UNK

REACTIONS (9)
  - Headache [Recovered/Resolved]
  - Neutrophil count decreased [Unknown]
  - Fatigue [Unknown]
  - Asthenia [Unknown]
  - Vomiting [Unknown]
  - Nausea [Unknown]
  - Pain [Unknown]
  - Insomnia [Unknown]
  - White blood cell count abnormal [Unknown]

NARRATIVE: CASE EVENT DATE: 20210512
